FAERS Safety Report 5786724-2 (Version None)
Quarter: 2008Q2

REPORT INFORMATION
  Report Type: 
  Country: None (occurrence: None)
  Receive Date: 20080624
  Receipt Date: 20080613
  Transmission Date: 20081010
  Serious: Yes (Hospitalization, Other)
  Sender: FDA-Public Use
  Company Number: US-ELI_LILLY_AND_COMPANY-US200805000480

PATIENT
  Sex: Female
  Weight: 53.968 kg

DRUGS (4)
  1. FORTEO [Suspect]
     Indication: OSTEOPOROSIS
     Dosage: 20 UG, DAILY (1/D)
     Dates: start: 20071201
  2. ANTIHYPERTENSIVES [Concomitant]
     Indication: BLOOD PRESSURE
  3. DEPAKOTE [Concomitant]
  4. PREDNISONE TAB [Concomitant]

REACTIONS (3)
  - FALL [None]
  - HIP FRACTURE [None]
  - LEUKOPENIA [None]
